FAERS Safety Report 6980931-9 (Version None)
Quarter: 2010Q3

REPORT INFORMATION
  Report Type: 
  Country: None (occurrence: None)
  Receive Date: 20100914
  Receipt Date: 20100910
  Transmission Date: 20110219
  Serious: Yes (Other)
  Sender: FDA-Public Use
  Company Number: A0880662A

PATIENT
  Sex: Female

DRUGS (4)
  1. ADVAIR DISKUS 100/50 [Suspect]
     Indication: ASTHMA
     Dosage: 1PUFF PER DAY
     Route: 055
  2. SINGULAIR [Concomitant]
  3. FLONASE [Concomitant]
  4. BENADRYL [Concomitant]

REACTIONS (2)
  - ASTHMA [None]
  - DRUG ADMINISTRATION ERROR [None]
